FAERS Safety Report 4420938-9 (Version None)
Quarter: 2004Q3

REPORT INFORMATION
  Report Type: 
  Country: None (occurrence: None)
  Receive Date: 20040809
  Receipt Date: 20040727
  Transmission Date: 20050211
  Serious: Yes (Hospitalization, Other)
  Sender: FDA-Public Use
  Company Number: US-JNJFOC-20040606613

PATIENT
  Sex: Male
  Weight: 119.3 kg

DRUGS (12)
  1. REMICADE [Suspect]
     Route: 042
  2. REMICADE [Suspect]
     Route: 042
  3. REMICADE [Suspect]
     Route: 042
  4. REMICADE [Suspect]
     Indication: RHEUMATOID ARTHRITIS
     Route: 042
  5. METHOTREXATE [Concomitant]
     Dosage: BEEN ON DRUG OFF AND ON SINCE 2001.
  6. FOLIC ACID [Concomitant]
  7. GLUCOPHAGE XR [Concomitant]
     Indication: DIABETES MELLITUS
  8. CRESTOR [Concomitant]
     Dosage: ONE IN THE PM
  9. CATAPLEX B [Concomitant]
     Dosage: 6 DOSES = 6 TABLETS
  10. SOLU-MEDROL [Concomitant]
     Route: 042
  11. ZYRTEC [Concomitant]
     Route: 049
  12. TYLENOL [Concomitant]
     Route: 049

REACTIONS (8)
  - DIABETES MELLITUS [None]
  - DYSPNOEA [None]
  - FLUSHING [None]
  - HEADACHE [None]
  - INFUSION RELATED REACTION [None]
  - SINUS CONGESTION [None]
  - TUBERCULIN TEST POSITIVE [None]
  - WHEEZING [None]
